APPROVED DRUG PRODUCT: KAPPADIONE
Active Ingredient: MENADIOL SODIUM DIPHOSPHATE
Strength: 10MG/ML
Dosage Form/Route: INJECTABLE;INJECTION
Application: N005725 | Product #001
Applicant: ELI LILLY AND CO
Approved: Approved Prior to Jan 1, 1982 | RLD: No | RS: No | Type: DISCN